FAERS Safety Report 14683746 (Version 3)
Quarter: 2019Q1

REPORT INFORMATION
  Report Type: Spontaneous
  Country: US (occurrence: US)
  Receive Date: 20180327
  Receipt Date: 20190307
  Transmission Date: 20190417
  Serious: Yes (Hospitalization, Other)
  Sender: FDA-Public Use
  Company Number: US-ASTRAZENECA-2018SE34919

PATIENT
  Age: 62 Year
  Sex: Male
  Weight: 102.1 kg

DRUGS (107)
  1. FLUCONAZOLE. [Concomitant]
     Active Substance: FLUCONAZOLE
     Route: 048
     Dates: start: 20131204
  2. CIPROFLOXACIN HYDROCHLORIDE. [Concomitant]
     Active Substance: CIPROFLOXACIN HYDROCHLORIDE
     Indication: INFECTION
     Dates: start: 2017
  3. CETRIZINE HCL [Concomitant]
     Indication: MULTIPLE ALLERGIES
     Route: 048
     Dates: start: 20140107
  4. TUDORZA PRESSAIR [Concomitant]
     Active Substance: ACLIDINIUM BROMIDE
     Dosage: INH
     Dates: start: 20140318
  5. OXYCONTIN [Concomitant]
     Active Substance: OXYCODONE HYDROCHLORIDE
     Indication: PAIN
     Dosage: GENERIC
     Dates: start: 2015, end: 2016
  6. MULTI-VITAMINS [Concomitant]
     Indication: VITAMIN SUPPLEMENTATION
     Dates: start: 2008
  7. VITAMIN D3 [Concomitant]
     Active Substance: CHOLECALCIFEROL
     Indication: PROPHYLAXIS
     Dosage: 1.50-400 U, TAKE 1 TABLET BY MGUTH DAILY
     Route: 048
     Dates: start: 2017
  8. CALCITRIOL. [Concomitant]
     Active Substance: CALCITRIOL
     Route: 048
     Dates: start: 20130205
  9. URIBEL [Concomitant]
     Active Substance: HYOSCYAMINE SULFATE\METHENAMINE\METHYLENE BLUE\PHENYL SALICYLATE\SODIUM PHOSPHATE, MONOBASIC, MONOHYDRATE
     Route: 048
     Dates: start: 20131218
  10. AMITIZA [Concomitant]
     Active Substance: LUBIPROSTONE
     Route: 048
     Dates: start: 20141201
  11. CLARITHROMYCIN. [Concomitant]
     Active Substance: CLARITHROMYCIN
     Route: 048
     Dates: start: 20151005
  12. VALACICLOVIR HYDROCHLORIDE [Concomitant]
     Active Substance: VALACYCLOVIR HYDROCHLORIDE
     Route: 048
     Dates: start: 20160203
  13. LISINOPRIL. [Concomitant]
     Active Substance: LISINOPRIL
     Indication: BLOOD PRESSURE ABNORMAL
     Dates: start: 2008
  14. DULOXETINE. [Concomitant]
     Active Substance: DULOXETINE
     Indication: DEPRESSION
     Dosage: CYMBALTA
     Route: 048
     Dates: start: 20060105
  15. CARISOPRODOL. [Concomitant]
     Active Substance: CARISOPRODOL
     Route: 048
     Dates: start: 20130410
  16. NYSTATIN. [Concomitant]
     Active Substance: NYSTATIN
     Dosage: 10,000 UNITS/ML
     Dates: start: 20130501
  17. DOXYCYCLINE HYCLATE. [Concomitant]
     Active Substance: DOXYCYCLINE HYCLATE
     Indication: INFECTION
     Dosage: APPROX 2016-2017
  18. HYDROXYZINE HYDROCHLORIDE. [Concomitant]
     Active Substance: HYDROXYZINE HYDROCHLORIDE
     Indication: SLEEP DISORDER
     Dosage: TAKE ONE CAPSULE BY MOUTH DAILY AS NEEDED, TAKE 25-75MG (1-3 CAPSULES) AT BEDTIME
     Route: 048
     Dates: start: 20160727
  19. PREDNISONE. [Concomitant]
     Active Substance: PREDNISONE
     Route: 048
     Dates: start: 20131001
  20. ENDOCET [Concomitant]
     Active Substance: ACETAMINOPHEN\OXYCODONE HYDROCHLORIDE
     Dosage: 10-325
     Route: 048
     Dates: start: 20131125
  21. LEVOFLOXACIN. [Concomitant]
     Active Substance: LEVOFLOXACIN
     Indication: PNEUMONIA
     Route: 048
     Dates: start: 20140107
  22. METHYLPREDNISOLONE. [Concomitant]
     Active Substance: METHYLPREDNISOLONE
     Route: 048
     Dates: start: 20140313
  23. FENTANYL. [Concomitant]
     Active Substance: FENTANYL
     Indication: PAIN
     Dosage: 12 MCG/HR PATCH
     Dates: start: 20141205
  24. NASONEX [Concomitant]
     Active Substance: MOMETASONE FUROATE
     Dosage: NASAL SPRAY
     Dates: start: 20150521
  25. AZITHROMYCIN ANHYDROUS. [Concomitant]
     Active Substance: AZITHROMYCIN ANHYDROUS
     Indication: INFECTION
     Route: 048
     Dates: start: 20151228
  26. AZITHROMYCIN ANHYDROUS. [Concomitant]
     Active Substance: AZITHROMYCIN ANHYDROUS
     Indication: INFECTION
     Dates: start: 2015
  27. CARVEDILOL. [Concomitant]
     Active Substance: CARVEDILOL
     Indication: BLOOD PRESSURE ABNORMAL
     Dates: start: 2015
  28. BACLOFEN. [Concomitant]
     Active Substance: BACLOFEN
     Indication: MUSCLE RELAXANT THERAPY
     Dates: start: 2017
  29. GUAIFENESIN. [Concomitant]
     Active Substance: GUAIFENESIN
     Route: 048
     Dates: start: 20040526
  30. NEXIUM [Suspect]
     Active Substance: ESOMEPRAZOLE MAGNESIUM
     Indication: GASTROOESOPHAGEAL REFLUX DISEASE
     Route: 048
     Dates: start: 20140412
  31. PENICILLIN VK [Concomitant]
     Active Substance: PENICILLIN V POTASSIUM
     Route: 048
     Dates: start: 20130215
  32. LORAZEPAM. [Concomitant]
     Active Substance: LORAZEPAM
     Route: 048
     Dates: start: 20130502
  33. CIPROFLOXACIN HYDROCHLORIDE. [Concomitant]
     Active Substance: CIPROFLOXACIN HYDROCHLORIDE
     Indication: INFECTION
     Route: 048
     Dates: start: 20131212
  34. NUCYNTA [Concomitant]
     Active Substance: TAPENTADOL HYDROCHLORIDE
     Route: 048
     Dates: start: 20140217
  35. GABAPENTIN. [Concomitant]
     Active Substance: GABAPENTIN
     Indication: NEURALGIA
     Route: 048
     Dates: start: 20140310
  36. TAMSULOSIN HYDROCHLORIDE. [Concomitant]
     Active Substance: TAMSULOSIN HYDROCHLORIDE
     Route: 048
     Dates: start: 20050512
  37. BENADRYL [Concomitant]
     Active Substance: DIPHENHYDRAMINE HYDROCHLORIDE
     Indication: MULTIPLE ALLERGIES
     Dates: start: 2014
  38. ZANTAC [Concomitant]
     Active Substance: RANITIDINE HYDROCHLORIDE
     Dosage: GENERIC RANITIDINE
     Route: 048
     Dates: start: 20050414
  39. ZANTAC [Concomitant]
     Active Substance: RANITIDINE HYDROCHLORIDE
     Dosage: GENERIC RANITIDINE
     Route: 048
     Dates: start: 20150323
  40. VIAGRA [Concomitant]
     Active Substance: SILDENAFIL CITRATE
     Route: 048
     Dates: start: 20160719
  41. LYRICA [Concomitant]
     Active Substance: PREGABALIN
     Route: 048
     Dates: start: 20160617
  42. CRESTOR [Concomitant]
     Active Substance: ROSUVASTATIN CALCIUM
     Route: 048
     Dates: start: 20060117
  43. NEXIUM [Suspect]
     Active Substance: ESOMEPRAZOLE MAGNESIUM
     Indication: GASTROOESOPHAGEAL REFLUX DISEASE
     Route: 048
     Dates: start: 200810, end: 201604
  44. KLOR-CON [Concomitant]
     Active Substance: POTASSIUM CHLORIDE
     Route: 048
     Dates: start: 20130321
  45. MIRTAZAPINE. [Concomitant]
     Active Substance: MIRTAZAPINE
     Indication: DEPRESSION
     Route: 048
     Dates: start: 20160719
  46. DEXAMETHASONE. [Concomitant]
     Active Substance: DEXAMETHASONE
     Route: 048
     Dates: start: 20140103
  47. LEVOFLOXACIN. [Concomitant]
     Active Substance: LEVOFLOXACIN
     Indication: PNEUMONIA
     Dates: start: 2016
  48. BETHANECHOL [Concomitant]
     Active Substance: BETHANECHOL
     Indication: URINARY RETENTION
     Route: 048
     Dates: start: 20140131
  49. MOXIFLOXACIN HYDROCHLORIDE. [Concomitant]
     Active Substance: MOXIFLOXACIN HYDROCHLORIDE
     Indication: INFECTION
     Dates: start: 2016
  50. CYANOCOBALAMIN. [Concomitant]
     Active Substance: CYANOCOBALAMIN
     Dosage: 1,000 MCG/ML
     Dates: start: 20141218
  51. ORAPRED ODT [Concomitant]
     Active Substance: PREDNISOLONE SODIUM PHOSPHATE
     Route: 048
     Dates: start: 20150327
  52. MOVANTIK [Concomitant]
     Active Substance: NALOXEGOL OXALATE
     Route: 048
     Dates: start: 20160318
  53. MORPHINE [Concomitant]
     Active Substance: MORPHINE
     Indication: PAIN
     Dates: start: 2013
  54. PROSCAR [Concomitant]
     Active Substance: FINASTERIDE
     Indication: URINARY RETENTION
     Dates: start: 2008
  55. DULOXETINE. [Concomitant]
     Active Substance: DULOXETINE
     Indication: DEPRESSION
     Route: 048
     Dates: start: 20160819
  56. LEVEMIR [Concomitant]
     Active Substance: INSULIN DETEMIR
     Dosage: FLEXTOUCH
     Dates: start: 20160809
  57. PREVACID [Suspect]
     Active Substance: LANSOPRAZOLE
     Indication: GASTROOESOPHAGEAL REFLUX DISEASE
     Route: 065
     Dates: start: 200608, end: 200609
  58. PROTONIX [Suspect]
     Active Substance: PANTOPRAZOLE SODIUM
     Indication: GASTROOESOPHAGEAL REFLUX DISEASE
     Route: 065
     Dates: start: 2006, end: 2016
  59. PROTONIX [Suspect]
     Active Substance: PANTOPRAZOLE SODIUM
     Indication: GASTROOESOPHAGEAL REFLUX DISEASE
     Route: 065
     Dates: start: 20060201
  60. SULFAMETHOXAZOLE [Concomitant]
     Active Substance: SULFAMETHOXAZOLE
     Route: 048
     Dates: start: 20130121
  61. HYDROXYZINE HYDROCHLORIDE. [Concomitant]
     Active Substance: HYDROXYZINE HYDROCHLORIDE
     Indication: SLEEP DISORDER
     Route: 048
     Dates: start: 20130513
  62. CARBIDOPA-LEVODOPA [Concomitant]
     Active Substance: CARBIDOPA\LEVODOPA
     Dosage: 25-100
     Route: 048
     Dates: start: 20140225
  63. OXYCONTIN [Concomitant]
     Active Substance: OXYCODONE HYDROCHLORIDE
     Indication: PAIN
     Route: 048
     Dates: start: 20140717
  64. AMLODIPINE BESYLATE. [Concomitant]
     Active Substance: AMLODIPINE BESYLATE
     Route: 048
     Dates: start: 20150622
  65. ASPIRIN. [Concomitant]
     Active Substance: ASPIRIN
     Indication: ANTICOAGULANT THERAPY
     Route: 048
     Dates: start: 2014
  66. TYLENOL [Concomitant]
     Active Substance: ACETAMINOPHEN
     Indication: PAIN
     Dates: start: 2008
  67. DULOXETINE. [Concomitant]
     Active Substance: DULOXETINE
     Indication: PAIN
     Route: 048
     Dates: start: 20160819
  68. ZOLPIDEM TARTRATE. [Concomitant]
     Active Substance: ZOLPIDEM TARTRATE
     Indication: SLEEP DISORDER
     Route: 048
     Dates: start: 20160819
  69. AVANDIA [Concomitant]
     Active Substance: ROSIGLITAZONE MALEATE
     Route: 048
     Dates: start: 20060725
  70. NEXIUM [Suspect]
     Active Substance: ESOMEPRAZOLE MAGNESIUM
     Indication: GASTROOESOPHAGEAL REFLUX DISEASE
     Dosage: ESOMEPRAZOLE MEGNESIUM TRIHYDRATE
     Route: 048
     Dates: start: 20110518
  71. ZOSTAVAX [Concomitant]
     Active Substance: VARICELLA-ZOSTER VIRUS STRAIN OKA/MERCK LIVE ANTIGEN
     Dates: start: 20130110
  72. CLONAZEPAM. [Concomitant]
     Active Substance: CLONAZEPAM
     Route: 048
     Dates: start: 20060309
  73. MIRTAZAPINE. [Concomitant]
     Active Substance: MIRTAZAPINE
     Indication: DEPRESSION
     Route: 048
     Dates: start: 20130701
  74. PRIMIDONE. [Concomitant]
     Active Substance: PRIMIDONE
     Route: 048
     Dates: start: 20140225
  75. GABAPENTIN. [Concomitant]
     Active Substance: GABAPENTIN
     Indication: NEURALGIA
     Dates: start: 2008
  76. SILVER SULFADIAZINE. [Concomitant]
     Active Substance: SILVER SULFADIAZINE
     Dates: start: 20140411
  77. DIPHENHYDRAMINE. [Concomitant]
     Active Substance: DIPHENHYDRAMINE
     Route: 048
     Dates: start: 20140423
  78. LIDOCAINE. [Concomitant]
     Active Substance: LIDOCAINE
     Dates: start: 20140624
  79. OXYCONTIN [Concomitant]
     Active Substance: OXYCODONE HYDROCHLORIDE
     Indication: PAIN
     Dosage: GENERIC
     Route: 048
     Dates: start: 20140519
  80. FENTANYL. [Concomitant]
     Active Substance: FENTANYL
     Indication: PAIN
     Dates: start: 2014, end: 2015
  81. ALBUTEROL SULFATE. [Concomitant]
     Active Substance: ALBUTEROL SULFATE
     Dosage: 2.5 MG/3 ML SOLUTION
     Dates: start: 20160203
  82. PRAVASTATIN SODIUM. [Concomitant]
     Active Substance: PRAVASTATIN SODIUM
     Indication: BLOOD CHOLESTEROL ABNORMAL
     Route: 048
     Dates: start: 20160414
  83. TUMS [Concomitant]
     Active Substance: CALCIUM CARBONATE
     Dates: start: 2004
  84. CELEBREX [Concomitant]
     Active Substance: CELECOXIB
     Indication: PAIN
     Dates: start: 2008, end: 2016
  85. LORATADINE. [Concomitant]
     Active Substance: LORATADINE
     Route: 048
     Dates: start: 20080811
  86. SEROQUEL [Concomitant]
     Active Substance: QUETIAPINE FUMARATE
     Route: 048
     Dates: start: 20060113
  87. NEXIUM [Suspect]
     Active Substance: ESOMEPRAZOLE MAGNESIUM
     Indication: GASTROOESOPHAGEAL REFLUX DISEASE
     Route: 048
     Dates: start: 2006, end: 2016
  88. NEXIUM [Suspect]
     Active Substance: ESOMEPRAZOLE MAGNESIUM
     Indication: GASTROOESOPHAGEAL REFLUX DISEASE
     Dosage: ESOMEPRAZOLE MEGNESIUM TRIHYDRATE
     Route: 048
     Dates: start: 20081006
  89. PREVACID [Suspect]
     Active Substance: LANSOPRAZOLE
     Indication: GASTROOESOPHAGEAL REFLUX DISEASE
     Route: 065
     Dates: start: 2006, end: 2016
  90. PREVACID [Suspect]
     Active Substance: LANSOPRAZOLE
     Indication: GASTROOESOPHAGEAL REFLUX DISEASE
     Route: 065
     Dates: start: 20060807
  91. PROTONIX [Suspect]
     Active Substance: PANTOPRAZOLE SODIUM
     Indication: GASTROOESOPHAGEAL REFLUX DISEASE
     Route: 065
     Dates: start: 200602, end: 200603
  92. CLINDAMYCIN HYDROCHLORIDE. [Concomitant]
     Active Substance: CLINDAMYCIN HYDROCHLORIDE
     Route: 048
     Dates: start: 20121224
  93. DOXYCYCLINE HYCLATE. [Concomitant]
     Active Substance: DOXYCYCLINE HYCLATE
     Indication: INFECTION
     Route: 048
     Dates: start: 20130513
  94. CIPROFLOXACIN HYDROCHLORIDE. [Concomitant]
     Active Substance: CIPROFLOXACIN HYDROCHLORIDE
     Indication: INFECTION
     Dates: start: 2015, end: 2016
  95. BENZONATATE. [Concomitant]
     Active Substance: BENZONATATE
     Route: 048
     Dates: start: 20131218
  96. HYDROMORPHONE [Concomitant]
     Active Substance: HYDROMORPHONE
     Route: 048
     Dates: start: 20131223
  97. BETHANECHOL [Concomitant]
     Active Substance: BETHANECHOL
     Indication: URINARY RETENTION
     Dates: start: 2016
  98. MOXIFLOXACIN HYDROCHLORIDE. [Concomitant]
     Active Substance: MOXIFLOXACIN HYDROCHLORIDE
     Indication: INFECTION
     Route: 048
     Dates: start: 20140416
  99. METOLAZONE. [Concomitant]
     Active Substance: METOLAZONE
     Route: 048
     Dates: start: 20140506
  100. MODAFINIL. [Concomitant]
     Active Substance: MODAFINIL
     Route: 048
     Dates: start: 20150507
  101. TRIAMCINOLONE [Concomitant]
     Active Substance: TRIAMCINOLONE
     Dates: start: 20150526
  102. CLONIDINE HYDROCHLORIDE. [Concomitant]
     Active Substance: CLONIDINE HYDROCHLORIDE
     Route: 048
     Dates: start: 20150825
  103. AMOX-CLAV [Concomitant]
     Active Substance: AMOXICILLIN\CLAVULANATE POTASSIUM
     Dosage: 875-125 MG
     Route: 048
     Dates: start: 20151008
  104. VITAMIN D3 [Concomitant]
     Active Substance: CHOLECALCIFEROL
     Indication: MINERAL SUPPLEMENTATION
     Dosage: 1.50-400 U, TAKE 1 TABLET BY MGUTH DAILY
     Route: 048
     Dates: start: 2017
  105. ZANTAC [Concomitant]
     Active Substance: RANITIDINE HYDROCHLORIDE
     Dosage: 150 (PRESCRIPTION)
     Dates: start: 2014
  106. LASIX [Concomitant]
     Active Substance: FUROSEMIDE
     Indication: CORONARY ARTERY DISEASE
     Route: 048
     Dates: start: 2015
  107. DULOXETINE. [Concomitant]
     Active Substance: DULOXETINE
     Indication: PAIN
     Dosage: CYMBALTA
     Route: 048
     Dates: start: 20060105

REACTIONS (3)
  - Chronic kidney disease-mineral and bone disorder [Unknown]
  - Chronic kidney disease [Not Recovered/Not Resolved]
  - Hyperparathyroidism secondary [Unknown]

NARRATIVE: CASE EVENT DATE: 2014
